FAERS Safety Report 4723542-8 (Version None)
Quarter: 2005Q3

REPORT INFORMATION
  Report Type: 
  Country: None (occurrence: None)
  Receive Date: 20050725
  Receipt Date: 20050714
  Transmission Date: 20060218
  Serious: Yes (Hospitalization)
  Sender: FDA-Public Use
  Company Number: 2005AP03873

PATIENT
  Sex: Male

DRUGS (2)
  1. TOPROL-XL [Suspect]
     Route: 048
     Dates: start: 20040501, end: 20040501
  2. TOPROL-XL [Suspect]
     Route: 048

REACTIONS (1)
  - PULMONARY OEDEMA [None]
